FAERS Safety Report 9652822 (Version 1)
Quarter: 2013Q4

REPORT INFORMATION
  Report Type: Spontaneous
  Country: US (occurrence: US)
  Receive Date: 20131029
  Receipt Date: 20131029
  Transmission Date: 20140711
  Serious: No
  Sender: FDA-Public Use
  Company Number: US-009507513-1310USA013338

PATIENT
  Sex: Female

DRUGS (1)
  1. DR. SCHOLLS CORN REMOVERS [Suspect]
     Indication: HYPERKERATOSIS
     Dosage: 2 DF, UNKNOWN
     Route: 061

REACTIONS (1)
  - Drug ineffective [Unknown]
